FAERS Safety Report 16783993 (Version 1)
Quarter: 2019Q3

REPORT INFORMATION
  Report Type: Report from Study
  Country: US (occurrence: US)
  Receive Date: 20190909
  Receipt Date: 20190909
  Transmission Date: 20191005
  Serious: Yes (Other)
  Sender: FDA-Public Use
  Company Number: PHEH2019US036294

PATIENT
  Age: 65 Year
  Sex: Female

DRUGS (1)
  1. PIQRAY [Suspect]
     Active Substance: ALPELISIB
     Indication: BREAST CANCER METASTATIC
     Dosage: 300 MG, QD
     Route: 048
     Dates: start: 20190806, end: 20190816

REACTIONS (5)
  - Ketoacidosis [Unknown]
  - Pyrexia [Recovered/Resolved]
  - Rash [Unknown]
  - Hypoglycaemia [Unknown]
  - Blood glucose increased [Unknown]

NARRATIVE: CASE EVENT DATE: 20190816
